FAERS Safety Report 20713027 (Version 1)
Quarter: 2022Q2

REPORT INFORMATION
  Report Type: Report from Study
  Country: IT (occurrence: IT)
  Receive Date: 20220415
  Receipt Date: 20220415
  Transmission Date: 20220721
  Serious: Yes (Other)
  Sender: FDA-Public Use
  Company Number: None

PATIENT
  Age: 57 Year
  Sex: Male
  Weight: 75 kg

DRUGS (4)
  1. FLUOROURACIL [Suspect]
     Active Substance: FLUOROURACIL
     Indication: Adenocarcinoma pancreas
     Dosage: UNIT DOSE :4700 MG, FREQUENCY TIME :1 CYCLICAL, FLUOROURACIL TEVA 5 G / 100 ML
     Route: 041
     Dates: start: 20220112
  2. FLUOROURACIL [Suspect]
     Active Substance: FLUOROURACIL
     Dosage: FLUOROURACIL TEVA 5 G / 100 ML ,UNIT DOSE : 790 MG, FREQUENCY TIME :1 CYCLICAL
     Route: 040
     Dates: start: 20220112
  3. IRINOTECAN HYDROCHLORIDE [Suspect]
     Active Substance: IRINOTECAN HYDROCHLORIDE
     Indication: Adenocarcinoma pancreas
     Dosage: UNIT DOSE : 350 MG, FREQUENCY TIME :1 CYCLICAL
     Dates: start: 20220112
  4. LEVOLEUCOVORIN CALCIUM [Concomitant]
     Active Substance: LEVOLEUCOVORIN CALCIUM
     Indication: Adenocarcinoma pancreas
     Dosage: CALCIUM LEVOFOLINATE TEVA 175 MG , UNIT DOSE : 390 MG, FREQUENCY TIME :1 CYCLICAL
     Dates: start: 20220112

REACTIONS (2)
  - Pyrexia [Unknown]
  - Asthenia [Unknown]

NARRATIVE: CASE EVENT DATE: 20220323
